FAERS Safety Report 11728992 (Version 1)
Quarter: 2015Q4

REPORT INFORMATION
  Report Type: Report from Study
  Country: US (occurrence: US)
  Receive Date: 20151112
  Receipt Date: 20151112
  Transmission Date: 20160304
  Serious: Yes (Other)
  Sender: FDA-Public Use
  Company Number: US-AMGEN-USASL2015117286

PATIENT
  Age: 66 Year
  Sex: Female

DRUGS (1)
  1. ENBREL [Suspect]
     Active Substance: ETANERCEPT
     Indication: RHEUMATOID ARTHRITIS
     Dosage: 25 MG, 2 TIMES/WK
     Route: 065
     Dates: start: 20020801

REACTIONS (6)
  - Hypersensitivity [Unknown]
  - Sarcoidosis [Unknown]
  - Respiratory tract congestion [Unknown]
  - Infection [Unknown]
  - Increased upper airway secretion [Unknown]
  - Musculoskeletal discomfort [Unknown]
